FAERS Safety Report 16229753 (Version 2)
Quarter: 2020Q2

REPORT INFORMATION
  Report Type: Spontaneous
  Country: US (occurrence: US)
  Receive Date: 20190423
  Receipt Date: 20200403
  Transmission Date: 20200713
  Serious: Yes (Other)
  Sender: FDA-Public Use
  Company Number: US-GILEAD-2019-0402872

PATIENT
  Age: 47 Year
  Sex: Male
  Weight: 91.61 kg

DRUGS (40)
  1. CALCITROL [CALCITRIOL] [Concomitant]
     Active Substance: CALCITRIOL
  2. WARFARIN [Concomitant]
     Active Substance: WARFARIN
  3. CLINDAMYCIN. [Concomitant]
     Active Substance: CLINDAMYCIN
  4. HYDROCODONE [Concomitant]
     Active Substance: HYDROCODONE
  5. ASPIRIN [ACETYLSALICYLIC ACID] [Concomitant]
     Active Substance: ASPIRIN
  6. GABAPENTIN. [Concomitant]
     Active Substance: GABAPENTIN
  7. TRAZODONE [Concomitant]
     Active Substance: TRAZODONE HYDROCHLORIDE
  8. FERROUS SULFATE. [Concomitant]
     Active Substance: FERROUS SULFATE
  9. OMEPRAZOLE. [Concomitant]
     Active Substance: OMEPRAZOLE
  10. LISINOPRIL. [Concomitant]
     Active Substance: LISINOPRIL
  11. ESCITALOPRAM [Concomitant]
     Active Substance: ESCITALOPRAM OXALATE
  12. PROAIR HFA [Concomitant]
     Active Substance: ALBUTEROL SULFATE
  13. MINOXIDIL. [Concomitant]
     Active Substance: MINOXIDIL
  14. AMITRIPTYLINE [Concomitant]
     Active Substance: AMITRIPTYLINE
  15. TRUVADA [Suspect]
     Active Substance: EMTRICITABINE\TENOFOVIR DISOPROXIL FUMARATE
     Indication: HIV INFECTION
     Dosage: 200-300MG
     Route: 048
     Dates: start: 200901, end: 201501
  16. LANTUS [Concomitant]
     Active Substance: INSULIN GLARGINE
  17. SULFAMETHOXAZOLE;TRIMETHOPRIM [Concomitant]
     Active Substance: SULFAMETHOXAZOLE\TRIMETHOPRIM
  18. POLYETHYLENE GLYCOL [Concomitant]
     Active Substance: POLYETHYLENE GLYCOLS
  19. ZIDOVUDINE. [Concomitant]
     Active Substance: ZIDOVUDINE
  20. CIALIS [Concomitant]
     Active Substance: TADALAFIL
  21. VITAMIN D3 [Concomitant]
     Active Substance: CHOLECALCIFEROL
  22. HUMALOG [Concomitant]
     Active Substance: INSULIN LISPRO
  23. NORVIR [Concomitant]
     Active Substance: RITONAVIR
  24. FLUCONAZOLE. [Concomitant]
     Active Substance: FLUCONAZOLE
  25. FENOFIBRATE. [Concomitant]
     Active Substance: FENOFIBRATE
  26. AZITHROMYCIN ANHYDROUS. [Concomitant]
     Active Substance: AZITHROMYCIN ANHYDROUS
  27. LAMIVUDINE. [Concomitant]
     Active Substance: LAMIVUDINE
  28. LEVEMIR [Concomitant]
     Active Substance: INSULIN DETEMIR
  29. BACTRIM [Concomitant]
     Active Substance: SULFAMETHOXAZOLE\TRIMETHOPRIM
  30. DOCUSATE SODIUM. [Concomitant]
     Active Substance: DOCUSATE SODIUM
  31. QUESTRAN [Concomitant]
     Active Substance: CHOLESTYRAMINE
  32. METOCLOPRAMIDE. [Concomitant]
     Active Substance: METOCLOPRAMIDE
  33. SARNA ULTRA [Concomitant]
  34. REYATAZ [Concomitant]
     Active Substance: ATAZANAVIR SULFATE
  35. SENNA-S [DOCUSATE SODIUM;SENNOSIDE A+B] [Concomitant]
  36. ALPRAZOLAM. [Concomitant]
     Active Substance: ALPRAZOLAM
  37. OXYCODONE [Concomitant]
     Active Substance: OXYCODONE
  38. TRADJENTA [Concomitant]
     Active Substance: LINAGLIPTIN
  39. SODIUM BICARBONATE. [Concomitant]
     Active Substance: SODIUM BICARBONATE
  40. PRAVASTATIN. [Concomitant]
     Active Substance: PRAVASTATIN

REACTIONS (8)
  - Chronic kidney disease [Not Recovered/Not Resolved]
  - Economic problem [Unknown]
  - End stage renal disease [Not Recovered/Not Resolved]
  - Anhedonia [Unknown]
  - Pain [Unknown]
  - Anxiety [Unknown]
  - Renal failure [Not Recovered/Not Resolved]
  - Emotional distress [Unknown]

NARRATIVE: CASE EVENT DATE: 201201
